FAERS Safety Report 20108331 (Version 1)
Quarter: 2021Q4

REPORT INFORMATION
  Report Type: Spontaneous
  Country: US (occurrence: None)
  Receive Date: 20211123
  Receipt Date: 20211123
  Transmission Date: 20220303
  Serious: No
  Sender: FDA-Public Use
  Company Number: None

PATIENT
  Sex: Male

DRUGS (1)
  1. PROMACTA [Suspect]
     Active Substance: ELTROMBOPAG OLAMINE
     Indication: Lymphocytic leukaemia
     Dosage: FREQUENCY : DAILY;?
     Route: 048

REACTIONS (2)
  - Disease progression [None]
  - Therapy non-responder [None]
